FAERS Safety Report 15961572 (Version 1)
Quarter: 2019Q1

REPORT INFORMATION
  Report Type: Spontaneous
  Country: US (occurrence: US)
  Receive Date: 20190122
  Receipt Date: 20190122
  Transmission Date: 20190417
  Serious: No
  Sender: FDA-Public Use
  Company Number: None

PATIENT
  Age: 54 Year
  Sex: Male

DRUGS (1)
  1. ENTECAVIR 0.5MG TAB (X30) [Suspect]
     Active Substance: ENTECAVIR
     Indication: TRANSPLANT
     Route: 048
     Dates: start: 201801

REACTIONS (4)
  - Feeling abnormal [None]
  - Therapy cessation [None]
  - Transplant rejection [None]
  - Abdominal discomfort [None]

NARRATIVE: CASE EVENT DATE: 20190122
